FAERS Safety Report 23313489 (Version 2)
Quarter: 2025Q1

REPORT INFORMATION
  Report Type: Report from Study
  Country: US (occurrence: US)
  Receive Date: 20231219
  Receipt Date: 20250127
  Transmission Date: 20250408
  Serious: Yes (Other)
  Sender: ROCHE
  Company Number: US-ROCHE-2875775

PATIENT
  Age: 73 Year
  Sex: Male

DRUGS (2)
  1. ESBRIET [Suspect]
     Active Substance: PIRFENIDONE
     Indication: Idiopathic pulmonary fibrosis
     Route: 048
     Dates: start: 201612
  2. ESBRIET [Suspect]
     Active Substance: PIRFENIDONE
     Dosage: TAKE 3 TABLET(S) BY MOUTH 3 TIMES A DAY
     Route: 048
     Dates: start: 201612

REACTIONS (10)
  - COVID-19 [Unknown]
  - Dysphagia [Unknown]
  - Fatigue [Unknown]
  - Somnolence [Unknown]
  - Lung disorder [Unknown]
  - General physical condition abnormal [Unknown]
  - Cardiac failure congestive [Unknown]
  - Asthenia [Unknown]
  - Weight decreased [Unknown]
  - Cardiac failure [Unknown]

NARRATIVE: CASE EVENT DATE: 20200301
